APPROVED DRUG PRODUCT: NICARDIPINE HYDROCHLORIDE
Active Ingredient: NICARDIPINE HYDROCHLORIDE
Strength: 20MG
Dosage Form/Route: CAPSULE;ORAL
Application: A218638 | Product #001 | TE Code: AB
Applicant: NAVINTA LLC
Approved: Jun 25, 2025 | RLD: No | RS: No | Type: RX